FAERS Safety Report 6703741-6 (Version None)
Quarter: 2010Q2

REPORT INFORMATION
  Report Type: 
  Country: None (occurrence: None)
  Receive Date: 20100430
  Receipt Date: 20090720
  Transmission Date: 20101027
  Serious: No
  Sender: FDA-Public Use
  Company Number: US-BAUSCH-2009BL003618

PATIENT
  Age: 62 Year
  Sex: Female

DRUGS (3)
  1. IPRATROPIUM BROMIDE [Suspect]
     Indication: HYPERSENSITIVITY
     Route: 045
     Dates: start: 20090714, end: 20090720
  2. IPRATROPIUM BROMIDE [Suspect]
     Indication: POSTNASAL DRIP
     Route: 045
     Dates: start: 20090714, end: 20090720
  3. TRAMADOL HCL [Concomitant]
     Indication: PAIN
     Route: 048

REACTIONS (1)
  - DRUG EFFECT DECREASED [None]
